FAERS Safety Report 12649965 (Version 2)
Quarter: 2016Q3

REPORT INFORMATION
  Report Type: Spontaneous
  Country: JP (occurrence: JP)
  Receive Date: 20160813
  Receipt Date: 20160901
  Transmission Date: 20161109
  Serious: Yes (Hospitalization, Other)
  Sender: FDA-Public Use
  Company Number: JP-AMGEN-JPNSP2016105565

PATIENT
  Age: 62 Year
  Sex: Male

DRUGS (13)
  1. CASPOFUNGIN ACETATE [Concomitant]
     Active Substance: CASPOFUNGIN ACETATE
     Indication: FEBRILE NEUTROPENIA
     Dosage: 70 MG, UNK
     Route: 041
  2. CASPOFUNGIN ACETATE [Concomitant]
     Active Substance: CASPOFUNGIN ACETATE
     Dosage: 50 MG, UNK
     Route: 041
  3. GRAN [Suspect]
     Active Substance: FILGRASTIM
     Indication: COLONY STIMULATING FACTOR PROPHYLAXIS
     Dosage: 75 MUG, UNK
     Route: 065
  4. OXALIPLATIN. [Suspect]
     Active Substance: OXALIPLATIN
     Indication: PANCREATIC CARCINOMA
     Dosage: 85 MG, 1X/2WEEKS
     Route: 041
  5. LEVOFOLINATE CALCIUM [Suspect]
     Active Substance: LEVOLEUCOVORIN CALCIUM
     Indication: PANCREATIC CARCINOMA
     Dosage: 200 MG/M2, 1X/2WEEKS
     Route: 041
  6. CEFEPIME [Concomitant]
     Active Substance: CEFEPIME HYDROCHLORIDE
     Indication: FEBRILE NEUTROPENIA
     Dosage: 4 G, UNK
     Route: 042
  7. G-LASTA [Suspect]
     Active Substance: PEGFILGRASTIM
     Indication: COLONY STIMULATING FACTOR PROPHYLAXIS
     Dosage: 3.6 MG, 1X/2WEEKS
     Route: 058
  8. IRINOTECAN HYDROCHLORIDE. [Suspect]
     Active Substance: IRINOTECAN HYDROCHLORIDE
     Indication: PANCREATIC CARCINOMA
     Dosage: 150 MG, 1X/2WEEKS
     Route: 041
  9. GRAN [Suspect]
     Active Substance: FILGRASTIM
     Dosage: 75 MUG, UNK
     Route: 065
  10. GRAN [Suspect]
     Active Substance: FILGRASTIM
     Dosage: 75 MUG, UNK
     Route: 065
  11. GRAN [Suspect]
     Active Substance: FILGRASTIM
     Dosage: 150 MUG, UNK
     Route: 065
  12. 5-FU                               /00098801/ [Suspect]
     Active Substance: FLUOROURACIL
     Indication: PANCREATIC CARCINOMA
     Dosage: 400 MG/M2, 1X/2WEEKS
     Route: 040
  13. 5-FU                               /00098801/ [Suspect]
     Active Substance: FLUOROURACIL
     Dosage: 2400 MG/M2, 1X/2WEEKS
     Route: 041

REACTIONS (4)
  - Colony stimulating factor therapy [Unknown]
  - Febrile neutropenia [Recovering/Resolving]
  - Haemoglobin decreased [Unknown]
  - Platelet count decreased [Unknown]
